FAERS Safety Report 5330198-2 (Version None)
Quarter: 2007Q2

REPORT INFORMATION
  Report Type: 
  Country: None (occurrence: None)
  Receive Date: 20070515
  Receipt Date: 20070328
  Transmission Date: 20071010
  Serious: Yes (Other)
  Sender: FDA-Public Use
  Company Number: 2007SP005134

PATIENT
  Age: 53 Year
  Sex: Male
  Weight: 77.1115 kg

DRUGS (5)
  1. PEG-INTRON [Suspect]
     Indication: HEPATITIS C
     Dates: start: 20070105
  2. RIBAVIRIN [Suspect]
     Indication: HEPATITIS C
     Dosage: PO
     Route: 048
     Dates: start: 20070105
  3. BACTRIM DS [Suspect]
     Indication: BRONCHITIS
     Dosage: 1 DF;BID;PO
     Route: 048
     Dates: start: 20070308, end: 20070315
  4. ZOLOFT [Concomitant]
  5. VICODIN [Concomitant]

REACTIONS (21)
  - ASTHENIA [None]
  - BLOOD PRESSURE INCREASED [None]
  - BONE PAIN [None]
  - CHOKING SENSATION [None]
  - DEHYDRATION [None]
  - DIARRHOEA [None]
  - DRUG HYPERSENSITIVITY [None]
  - DRUG INEFFECTIVE [None]
  - DRY MOUTH [None]
  - DYSPHONIA [None]
  - DYSURIA [None]
  - HALLUCINATION, VISUAL [None]
  - HEART RATE INCREASED [None]
  - LOWER RESPIRATORY TRACT INFECTION [None]
  - MALAISE [None]
  - MICTURITION URGENCY [None]
  - NAUSEA [None]
  - PAIN [None]
  - STOMATITIS [None]
  - VOMITING [None]
  - WEIGHT DECREASED [None]
